FAERS Safety Report 5407815-1 (Version None)
Quarter: 2007Q3

REPORT INFORMATION
  Report Type: 
  Country: None (occurrence: None)
  Receive Date: 20070803
  Receipt Date: 20070727
  Transmission Date: 20080115
  Serious: Yes (Other)
  Sender: FDA-Public Use
  Company Number: 2007SP015232

PATIENT

DRUGS (3)
  1. INTEGRILIN [Suspect]
     Indication: DRUG USE FOR UNKNOWN INDICATION
  2. DEMEROL [Concomitant]
  3. VERSED [Concomitant]

REACTIONS (1)
  - ANAPHYLACTIC SHOCK [None]
